FAERS Safety Report 25551109 (Version 1)
Quarter: 2025Q3

REPORT INFORMATION
  Report Type: Spontaneous
  Country: US (occurrence: US)
  Receive Date: 20250714
  Receipt Date: 20250714
  Transmission Date: 20251021
  Serious: Yes (Death, Other)
  Sender: AMGEN
  Company Number: US-AMGEN-USASP2025133087

PATIENT

DRUGS (1)
  1. PREDNISONE [Suspect]
     Active Substance: PREDNISONE
     Indication: Immunosuppressant drug therapy
     Route: 065

REACTIONS (22)
  - Death [Fatal]
  - Pneumonia [Unknown]
  - Upper respiratory tract infection [Unknown]
  - Pyelonephritis [Unknown]
  - Urinary tract infection [Unknown]
  - Aspergillus infection [Unknown]
  - Bacteraemia [Unknown]
  - Kidney transplant rejection [Unknown]
  - Enterococcal infection [Unknown]
  - Pseudomonas infection [Unknown]
  - Clostridium difficile infection [Unknown]
  - Gastroenteritis [Unknown]
  - Cellulitis [Unknown]
  - Escherichia infection [Unknown]
  - Klebsiella infection [Unknown]
  - Enterobacter infection [Unknown]
  - Cytomegalovirus infection [Unknown]
  - Varicella zoster virus infection [Unknown]
  - Herpes simplex [Unknown]
  - Respiratory syncytial virus infection [Unknown]
  - COVID-19 [Unknown]
  - Candida infection [Unknown]
